FAERS Safety Report 4614226-5 (Version None)
Quarter: 2005Q1

REPORT INFORMATION
  Report Type: 
  Country: None (occurrence: None)
  Receive Date: 20050315
  Receipt Date: 20050301
  Transmission Date: 20050727
  Serious: Yes (Hospitalization, Other)
  Sender: FDA-Public Use
  Company Number: USA-2005-0018948

PATIENT
  Sex: Male

DRUGS (8)
  1. MORPHINE SULFATE [Suspect]
  2. OXYCODONE HCL [Concomitant]
  3. XANAFALEX [Concomitant]
  4. FLEXERIL [Concomitant]
  5. PRILOSEC [Concomitant]
  6. TRAZODONE (TRAZODONE) [Concomitant]
  7. ZOLOFT [Concomitant]
  8. AMOXIL [Concomitant]

REACTIONS (15)
  - ABDOMINAL PAIN [None]
  - ANXIETY [None]
  - ARTHRALGIA [None]
  - CHEST PAIN [None]
  - CIRCULATORY COLLAPSE [None]
  - DEPRESSION [None]
  - DYSPNOEA [None]
  - FALL [None]
  - HYPERHIDROSIS [None]
  - JOINT SPRAIN [None]
  - LIMB INJURY [None]
  - LOSS OF CONSCIOUSNESS [None]
  - OEDEMA PERIPHERAL [None]
  - PAIN IN EXTREMITY [None]
  - TENDERNESS [None]
